FAERS Safety Report 4382400-1 (Version None)
Quarter: 2004Q2

REPORT INFORMATION
  Report Type: 
  Country: None (occurrence: None)
  Receive Date: 20040621
  Receipt Date: 20040621
  Transmission Date: 20050107
  Serious: Yes (Other)
  Sender: FDA-Public Use
  Company Number: None

PATIENT
  Age: 53 Year
  Sex: Female

DRUGS (7)
  1. TOPAMAX [Suspect]
     Dosage: 150 MG TWICEA  DAY ORAL
     Route: 048
  2. METOCLOPRAMIDE [Suspect]
     Dosage: ORAL
     Route: 048
  3. IMITREX [Concomitant]
  4. WELLBUTRIN SR [Concomitant]
  5. FLONASE [Concomitant]
  6. ADDERALL XR 20 [Concomitant]
  7. AMBIEN [Concomitant]

REACTIONS (4)
  - BRADYPHRENIA [None]
  - MANIA [None]
  - PARANOIA [None]
  - SPEECH DISORDER [None]
